FAERS Safety Report 15212191 (Version 2)
Quarter: 2018Q4

REPORT INFORMATION
  Report Type: Report from Study
  Country: US (occurrence: US)
  Receive Date: 20180730
  Receipt Date: 20181214
  Transmission Date: 20190204
  Serious: Yes (Hospitalization, Other)
  Sender: FDA-Public Use
  Company Number: PHEH2018US030439

PATIENT
  Sex: Male

DRUGS (1)
  1. PROMACTA [Suspect]
     Active Substance: ELTROMBOPAG OLAMINE
     Indication: PLATELET COUNT DECREASED
     Route: 065

REACTIONS (5)
  - Platelet count decreased [Unknown]
  - Ulcer haemorrhage [Unknown]
  - Dizziness [Unknown]
  - Disease recurrence [Unknown]
  - Gait disturbance [Unknown]
